FAERS Safety Report 21794348 (Version 1)
Quarter: 2022Q4

REPORT INFORMATION
  Report Type: Report from Study
  Country: US (occurrence: US)
  Receive Date: 20221229
  Receipt Date: 20221229
  Transmission Date: 20230113
  Serious: Yes (Other)
  Sender: FDA-Public Use
  Company Number: US-TAKEDA-2022TUS100517

PATIENT
  Age: 29 Year
  Sex: Female
  Weight: 206 kg

DRUGS (87)
  1. PARATHYROID HORMONE [Suspect]
     Active Substance: PARATHYROID HORMONE
     Indication: Hypoparathyroidism
     Dosage: 50 MICROGRAM, QD
     Route: 065
     Dates: start: 20150909, end: 20160106
  2. PARATHYROID HORMONE [Suspect]
     Active Substance: PARATHYROID HORMONE
     Indication: Hypoparathyroidism
     Dosage: 50 MICROGRAM, QD
     Route: 065
     Dates: start: 20150909, end: 20160106
  3. PARATHYROID HORMONE [Suspect]
     Active Substance: PARATHYROID HORMONE
     Indication: Hypoparathyroidism
     Dosage: 50 MICROGRAM, QD
     Route: 065
     Dates: start: 20150909, end: 20160106
  4. PARATHYROID HORMONE [Suspect]
     Active Substance: PARATHYROID HORMONE
     Dosage: 75 MICROGRAM, QD
     Route: 065
     Dates: start: 20160206, end: 20161003
  5. PARATHYROID HORMONE [Suspect]
     Active Substance: PARATHYROID HORMONE
     Dosage: 75 MICROGRAM, QD
     Route: 065
     Dates: start: 20160206, end: 20161003
  6. PARATHYROID HORMONE [Suspect]
     Active Substance: PARATHYROID HORMONE
     Dosage: 75 MICROGRAM, QD
     Route: 065
     Dates: start: 20160206, end: 20161003
  7. PARATHYROID HORMONE [Suspect]
     Active Substance: PARATHYROID HORMONE
     Dosage: 100 MICROGRAM, QD
     Route: 065
     Dates: start: 20161003, end: 20190405
  8. PARATHYROID HORMONE [Suspect]
     Active Substance: PARATHYROID HORMONE
     Dosage: 100 MICROGRAM, QD
     Route: 065
     Dates: start: 20161003, end: 20190405
  9. PARATHYROID HORMONE [Suspect]
     Active Substance: PARATHYROID HORMONE
     Dosage: 100 MICROGRAM, QD
     Route: 065
     Dates: start: 20161003, end: 20190405
  10. DIAZEPAM [Concomitant]
     Active Substance: DIAZEPAM
     Indication: Anxiety
     Dosage: UNK
     Route: 058
     Dates: start: 20140114, end: 20170530
  11. DIAZEPAM [Concomitant]
     Active Substance: DIAZEPAM
     Indication: Headache
     Dosage: UNK
     Route: 058
     Dates: start: 20160421, end: 20160421
  12. IBUPROFEN [Concomitant]
     Active Substance: IBUPROFEN
     Indication: Pain
     Dosage: UNK
     Route: 048
     Dates: start: 20140717, end: 20170510
  13. ZOFRAN [Concomitant]
     Active Substance: ONDANSETRON HYDROCHLORIDE
     Indication: Nausea
     Dosage: UNK
     Route: 042
     Dates: start: 20140409
  14. ZOFRAN [Concomitant]
     Active Substance: ONDANSETRON HYDROCHLORIDE
     Indication: Chest pain
     Dosage: UNK
     Route: 042
     Dates: start: 20141012, end: 20141012
  15. ZOFRAN [Concomitant]
     Active Substance: ONDANSETRON HYDROCHLORIDE
     Indication: Catheter site pain
     Dosage: UNK
     Route: 042
     Dates: start: 20141125, end: 20141125
  16. ZOFRAN [Concomitant]
     Active Substance: ONDANSETRON HYDROCHLORIDE
     Indication: Hypocalcaemia
     Dosage: UNK
     Route: 042
     Dates: start: 20150108, end: 20150108
  17. ZOFRAN [Concomitant]
     Active Substance: ONDANSETRON HYDROCHLORIDE
     Indication: Seizure
     Dosage: UNK
     Route: 042
     Dates: start: 20150410, end: 20150410
  18. ZOFRAN [Concomitant]
     Active Substance: ONDANSETRON HYDROCHLORIDE
     Dosage: UNK
     Route: 042
     Dates: start: 20150601, end: 20150601
  19. ZOFRAN [Concomitant]
     Active Substance: ONDANSETRON HYDROCHLORIDE
     Dosage: UNK
     Route: 042
     Dates: start: 20151001, end: 20151001
  20. ZOFRAN [Concomitant]
     Active Substance: ONDANSETRON HYDROCHLORIDE
     Dosage: UNK
     Route: 042
     Dates: start: 20151025, end: 20151025
  21. POTASSIUM [Concomitant]
     Active Substance: POTASSIUM
     Indication: Hypokalaemia
     Dosage: UNK
     Dates: start: 20140703
  22. SYNTHROID [Concomitant]
     Active Substance: LEVOTHYROXINE SODIUM
     Indication: Hypothyroidism
     Dosage: UNK
     Dates: start: 20120612
  23. ESTRADIOL [Concomitant]
     Active Substance: ESTRADIOL
     Indication: Hypogonadism
     Dosage: UNK
     Dates: start: 20150109
  24. ESTRADIOL [Concomitant]
     Active Substance: ESTRADIOL
     Indication: Empyema
     Dosage: UNK
     Route: 061
     Dates: start: 20161019, end: 20161027
  25. PERCOCET [Concomitant]
     Active Substance: ACETAMINOPHEN\OXYCODONE HYDROCHLORIDE
     Indication: Catheter site pain
     Dosage: UNK
     Route: 048
     Dates: start: 20131120, end: 20170608
  26. PERCOCET [Concomitant]
     Active Substance: ACETAMINOPHEN\OXYCODONE HYDROCHLORIDE
     Indication: Pain
     Dosage: UNK
     Route: 048
     Dates: start: 20140808, end: 20140808
  27. PERCOCET [Concomitant]
     Active Substance: ACETAMINOPHEN\OXYCODONE HYDROCHLORIDE
     Indication: Seizure
     Dosage: UNK
     Route: 048
     Dates: start: 20141117, end: 20141117
  28. PERCOCET [Concomitant]
     Active Substance: ACETAMINOPHEN\OXYCODONE HYDROCHLORIDE
     Indication: Pain
     Dosage: UNK
     Route: 048
     Dates: start: 20150410, end: 20150410
  29. PERCOCET [Concomitant]
     Active Substance: ACETAMINOPHEN\OXYCODONE HYDROCHLORIDE
     Dosage: UNK
     Route: 048
     Dates: start: 20150511, end: 20150511
  30. PROMETHAZINE HYDROCHLORIDE [Concomitant]
     Active Substance: PROMETHAZINE HYDROCHLORIDE
     Indication: Nausea
     Dosage: UNK
     Route: 048
     Dates: start: 20140410
  31. MORPHINE [Concomitant]
     Active Substance: MORPHINE
     Indication: Chest pain
     Dosage: UNK
     Route: 042
     Dates: start: 20141012, end: 20141012
  32. MORPHINE [Concomitant]
     Active Substance: MORPHINE
     Indication: Catheter site pain
     Dosage: UNK
     Route: 042
     Dates: start: 20150101, end: 20150101
  33. MORPHINE [Concomitant]
     Active Substance: MORPHINE
     Indication: Hypocalcaemia
     Dosage: UNK
     Route: 042
     Dates: start: 20150108, end: 20150108
  34. MORPHINE [Concomitant]
     Active Substance: MORPHINE
     Indication: Pain
     Dosage: UNK
     Route: 042
     Dates: start: 20150511, end: 20150511
  35. MORPHINE [Concomitant]
     Active Substance: MORPHINE
     Indication: Idiopathic intracranial hypertension
     Dosage: UNK
     Route: 042
     Dates: start: 20151001, end: 20151001
  36. MORPHINE [Concomitant]
     Active Substance: MORPHINE
     Indication: Empyema
     Dosage: UNK
     Route: 042
     Dates: start: 20151025, end: 20151025
  37. MORPHINE [Concomitant]
     Active Substance: MORPHINE
     Dosage: UNK
     Route: 058
     Dates: start: 20160630, end: 20160630
  38. MORPHINE [Concomitant]
     Active Substance: MORPHINE
     Dosage: UNK
     Route: 042
     Dates: start: 20161017, end: 20161017
  39. ASPIRIN [Concomitant]
     Active Substance: ASPIRIN
     Indication: Chest pain
     Dosage: UNK
     Route: 048
     Dates: start: 20141012, end: 20141012
  40. DILAUDID [Concomitant]
     Active Substance: HYDROMORPHONE HYDROCHLORIDE
     Indication: Catheter site pain
     Dosage: UNK
     Route: 042
     Dates: start: 20141117, end: 20141117
  41. DILAUDID [Concomitant]
     Active Substance: HYDROMORPHONE HYDROCHLORIDE
     Indication: Hypocalcaemia
     Dosage: UNK
     Route: 042
     Dates: start: 20141125, end: 20141125
  42. BENADRYL [Concomitant]
     Active Substance: DIPHENHYDRAMINE HYDROCHLORIDE
     Indication: Hypersensitivity
     Dosage: UNK
     Route: 042
     Dates: start: 20150101, end: 20150101
  43. BENADRYL [Concomitant]
     Active Substance: DIPHENHYDRAMINE HYDROCHLORIDE
     Indication: Headache
     Dosage: UNK
     Route: 042
     Dates: start: 20150108, end: 20150108
  44. BENADRYL [Concomitant]
     Active Substance: DIPHENHYDRAMINE HYDROCHLORIDE
     Dosage: UNK
     Route: 042
     Dates: start: 20150511, end: 20150511
  45. BENADRYL [Concomitant]
     Active Substance: DIPHENHYDRAMINE HYDROCHLORIDE
     Dosage: UNK
     Route: 042
     Dates: start: 20150601, end: 20150601
  46. BENADRYL [Concomitant]
     Active Substance: DIPHENHYDRAMINE HYDROCHLORIDE
     Dosage: UNK
     Route: 042
     Dates: start: 20160906, end: 20160906
  47. TORADOL [Concomitant]
     Active Substance: KETOROLAC TROMETHAMINE
     Indication: Pain
     Dosage: UNK
     Route: 042
     Dates: start: 20150108, end: 20150108
  48. TORADOL [Concomitant]
     Active Substance: KETOROLAC TROMETHAMINE
     Indication: Seizure
     Dosage: UNK
     Route: 042
     Dates: start: 20150410, end: 20150410
  49. CIPRO [Concomitant]
     Active Substance: CIPROFLOXACIN HYDROCHLORIDE
     Indication: Urinary tract infection
     Dosage: UNK
     Route: 048
     Dates: start: 20150410, end: 20150410
  50. SOLU-MEDROL [Concomitant]
     Active Substance: METHYLPREDNISOLONE SODIUM SUCCINATE
     Indication: Eczema
     Dosage: UNK
     Dates: start: 20150511, end: 20150511
  51. MYLANTA [Concomitant]
     Active Substance: ALUMINUM HYDROXIDE\DIMETHICONE\MAGNESIUM HYDROXIDE
     Dosage: UNK
     Dates: start: 20150511, end: 20150511
  52. LIDOCAINE [Concomitant]
     Active Substance: LIDOCAINE
     Dosage: UNK
     Dates: start: 20150511, end: 20150511
  53. PEPCID [Concomitant]
     Active Substance: FAMOTIDINE
     Indication: Pain
     Dosage: UNK
     Dates: start: 20150511, end: 20150511
  54. PHENERGAN [Concomitant]
     Active Substance: PROMETHAZINE HYDROCHLORIDE
     Indication: Nausea
     Dosage: UNK
     Dates: start: 20150601, end: 20150601
  55. ADVIL [Concomitant]
     Active Substance: IBUPROFEN
     Indication: Chest pain
     Dosage: UNK
     Route: 048
     Dates: start: 20151001, end: 20151001
  56. ALBUTEROL SULFATE [Concomitant]
     Active Substance: ALBUTEROL SULFATE
     Indication: Dyspnoea
     Dosage: UNK
     Route: 050
     Dates: start: 20160106
  57. CEFTRIAXONE SODIUM [Concomitant]
     Active Substance: CEFTRIAXONE SODIUM
     Indication: Meningitis
     Dosage: UNK
     Route: 042
     Dates: start: 20160106, end: 20160108
  58. CALCIUM GLUCONATE [Concomitant]
     Active Substance: CALCIUM GLUCONATE
     Indication: Headache
     Dosage: UNK
     Route: 042
     Dates: start: 20160301, end: 20160301
  59. KETOROLAC [Concomitant]
     Active Substance: KETOROLAC TROMETHAMINE
     Indication: Headache
     Dosage: UNK
     Route: 042
     Dates: start: 20160301, end: 20160301
  60. KETOROLAC [Concomitant]
     Active Substance: KETOROLAC TROMETHAMINE
     Indication: Idiopathic intracranial hypertension
     Dosage: UNK
     Route: 042
     Dates: start: 20160906, end: 20160906
  61. KETOROLAC [Concomitant]
     Active Substance: KETOROLAC TROMETHAMINE
     Indication: Empyema
     Dosage: UNK
     Route: 058
     Dates: start: 20160630, end: 20160630
  62. KETOROLAC [Concomitant]
     Active Substance: KETOROLAC TROMETHAMINE
     Dosage: UNK
     Route: 058
     Dates: start: 20161017, end: 20161019
  63. PROMETHAZINE [Concomitant]
     Active Substance: PROMETHAZINE HYDROCHLORIDE
     Indication: Headache
     Dosage: UNK
     Route: 042
     Dates: start: 20160301, end: 20160301
  64. SODIUM CHLORIDE [Concomitant]
     Active Substance: SODIUM CHLORIDE
     Indication: Headache
     Dosage: UNK
     Route: 042
     Dates: start: 20160301, end: 20160301
  65. SODIUM CHLORIDE [Concomitant]
     Active Substance: SODIUM CHLORIDE
     Dosage: UNK
     Route: 042
     Dates: start: 20160906, end: 20160906
  66. OXYCODONE [Concomitant]
     Active Substance: OXYCODONE
     Indication: Idiopathic intracranial hypertension
     Dosage: UNK
     Route: 048
     Dates: start: 20160614, end: 201606
  67. OXYCODONE [Concomitant]
     Active Substance: OXYCODONE
     Indication: Idiopathic intracranial hypertension
     Dosage: UNK
     Route: 048
     Dates: start: 20160709, end: 201607
  68. SENNA [Concomitant]
     Active Substance: SENNA LEAF\SENNOSIDES\SENNOSIDES A AND B
     Indication: Constipation
     Dosage: UNK
     Dates: start: 20160614, end: 201606
  69. SENNA [Concomitant]
     Active Substance: SENNA LEAF\SENNOSIDES\SENNOSIDES A AND B
     Dosage: UNK
     Route: 048
     Dates: start: 20170317, end: 20170318
  70. CYCLOBENZAPRINE [Concomitant]
     Active Substance: CYCLOBENZAPRINE
     Indication: Idiopathic intracranial hypertension
     Dosage: UNK
     Route: 048
     Dates: start: 20160709, end: 201607
  71. DOCUSATE SODIUM [Concomitant]
     Active Substance: DOCUSATE SODIUM
     Indication: Idiopathic intracranial hypertension
     Dosage: UNK
     Route: 048
     Dates: start: 20160709, end: 201607
  72. POLYETHYLENE GLYCOL [Concomitant]
     Active Substance: POLYETHYLENE GLYCOL
     Indication: Idiopathic intracranial hypertension
     Dosage: UNK
     Route: 048
     Dates: start: 20160709, end: 201607
  73. ACETAMINOPHEN\HYDROCODONE [Concomitant]
     Active Substance: ACETAMINOPHEN\HYDROCODONE
     Indication: Idiopathic intracranial hypertension
     Dosage: UNK
     Route: 048
     Dates: start: 20160828, end: 201609
  74. TRAMADOL [Concomitant]
     Active Substance: TRAMADOL
     Indication: Idiopathic intracranial hypertension
     Dosage: UNK
     Route: 048
     Dates: start: 20160828, end: 201610
  75. KEFLEX [Concomitant]
     Active Substance: CEPHALEXIN
     Indication: Wound infection
     Dosage: UNK
     Route: 048
     Dates: start: 20160819, end: 20160828
  76. KEFLEX [Concomitant]
     Active Substance: CEPHALEXIN
     Indication: Wound dehiscence
     Dosage: UNK
     Route: 048
     Dates: start: 20170523, end: 20170530
  77. PIPERACILLIN SODIUM\TAZOBACTAM SODIUM [Concomitant]
     Active Substance: PIPERACILLIN SODIUM\TAZOBACTAM SODIUM
     Indication: Staphylococcal abscess
     Dosage: UNK
     Route: 042
     Dates: start: 20161017, end: 20161017
  78. PIPERACILLIN SODIUM\TAZOBACTAM SODIUM [Concomitant]
     Active Substance: PIPERACILLIN SODIUM\TAZOBACTAM SODIUM
     Indication: Empyema
  79. VANCOMYCIN [Concomitant]
     Active Substance: VANCOMYCIN
     Indication: Empyema
     Dosage: UNK
     Route: 042
     Dates: start: 20161017, end: 20161018
  80. IOPAMIDOL [Concomitant]
     Active Substance: IOPAMIDOL
     Indication: Empyema
     Dosage: UNK
     Route: 042
     Dates: start: 20161017, end: 20161017
  81. HEPARIN [Concomitant]
     Active Substance: HEPARIN SODIUM
     Indication: Empyema
     Dosage: UNK
     Route: 058
     Dates: start: 20161018, end: 20161020
  82. PIPERACILLIN AND TAZOBACTAM [Concomitant]
     Active Substance: PIPERACILLIN SODIUM\TAZOBACTAM SODIUM
     Indication: Empyema
     Dosage: UNK
     Route: 042
     Dates: start: 20161018, end: 20161020
  83. DAPTOMYCIN [Concomitant]
     Active Substance: DAPTOMYCIN
     Indication: Empyema
     Dosage: UNK
     Route: 042
     Dates: start: 20161019, end: 20161019
  84. CEFTRIAXONE [Concomitant]
     Active Substance: CEFTRIAXONE
     Indication: Empyema
     Dosage: UNK
     Route: 042
     Dates: start: 20161020, end: 20161027
  85. SENNA AND DOCUSATE SODIUM [Concomitant]
     Active Substance: DOCUSATE SODIUM\SENNOSIDES
     Indication: Empyema
     Dosage: UNK
     Route: 048
     Dates: start: 20161019, end: 20161025
  86. FLUCONAZOLE [Concomitant]
     Active Substance: FLUCONAZOLE
     Indication: Vulvovaginal mycotic infection
     Dosage: UNK
     Route: 048
     Dates: start: 20161202, end: 20161208
  87. HYDROCORTISONE [Concomitant]
     Active Substance: HYDROCORTISONE
     Indication: Vulvovaginal mycotic infection
     Dosage: UNK
     Route: 061
     Dates: start: 20161202, end: 20170210

REACTIONS (1)
  - Rectal haemorrhage [Recovered/Resolved]

NARRATIVE: CASE EVENT DATE: 20170101
